FAERS Safety Report 8013185-5 (Version None)
Quarter: 2011Q4

REPORT INFORMATION
  Report Type: 
  Country: None (occurrence: None)
  Receive Date: 20111229
  Receipt Date: 20111215
  Transmission Date: 20120403
  Serious: Yes (Hospitalization)
  Sender: FDA-Public Use
  Company Number: GB-MYLANLABS-2011S1025881

PATIENT
  Age: 54 Year
  Sex: Female

DRUGS (1)
  1. LATANOPROST [Suspect]
     Indication: OPEN ANGLE GLAUCOMA
     Dosage: LATANOPROST 0.005%
     Route: 047

REACTIONS (1)
  - ATRIOVENTRICULAR BLOCK [None]
